FAERS Safety Report 19363127 (Version 3)
Quarter: 2021Q2

REPORT INFORMATION
  Report Type: Spontaneous
  Country: US (occurrence: US)
  Receive Date: 20210602
  Receipt Date: 20210615
  Transmission Date: 20210717
  Serious: No
  Sender: FDA-Public Use
  Company Number: US-BIOGEN-2021BI01016096

PATIENT
  Sex: Female

DRUGS (1)
  1. TECFIDERA [Suspect]
     Active Substance: DIMETHYL FUMARATE
     Indication: MULTIPLE SCLEROSIS
     Route: 048
     Dates: start: 20191211, end: 20210531

REACTIONS (9)
  - Arthritis [Unknown]
  - Platelet count decreased [Not Recovered/Not Resolved]
  - Multiple sclerosis [Unknown]
  - Hypertension [Unknown]
  - Product dose omission in error [Recovered/Resolved]
  - Upper respiratory tract infection [Unknown]
  - Foreign body in throat [Recovered/Resolved]
  - Hot flush [Unknown]
  - Dyspepsia [Unknown]
